FAERS Safety Report 4762239-5 (Version None)
Quarter: 2005Q3

REPORT INFORMATION
  Report Type: 
  Country: None (occurrence: None)
  Receive Date: 20050831
  Receipt Date: 20050831
  Transmission Date: 20060218
  Serious: Yes (Other)
  Sender: FDA-Public Use
  Company Number: None

PATIENT
  Age: 56 Year
  Sex: Male
  Weight: 93.8946 kg

DRUGS (7)
  1. SEROQUEL [Suspect]
     Indication: DRUG DEPENDENCE
     Dosage: 100 MG QHS AND 25 MG PRN
     Dates: start: 20050703, end: 20050705
  2. LORTAB [Suspect]
     Indication: PAIN
     Dosage: 10 MG
     Dates: end: 20050704
  3. LIBRIUM [Concomitant]
  4. CATAPRES [Concomitant]
  5. ROBAXIN [Concomitant]
  6. BENTYL [Concomitant]
  7. IMODIUM [Concomitant]

REACTIONS (6)
  - ABNORMAL BEHAVIOUR [None]
  - BLOOD PRESSURE SYSTOLIC INCREASED [None]
  - DISORIENTATION [None]
  - DYSARTHRIA [None]
  - DYSKINESIA [None]
  - RESTLESSNESS [None]
